FAERS Safety Report 9716225 (Version 1)
Quarter: 2013Q4

REPORT INFORMATION
  Report Type: Spontaneous
  Country: US (occurrence: None)
  Receive Date: 20131126
  Receipt Date: 20131126
  Transmission Date: 20140711
  Serious: Yes (Death)
  Sender: FDA-Public Use
  Company Number: None

PATIENT
  Age: 79 Year
  Sex: Male

DRUGS (2)
  1. DOXORUBICIN [Suspect]
     Indication: NEOPLASM MALIGNANT
     Dosage: AS DIRECTED
     Route: 042
     Dates: start: 201307, end: 201309
  2. CYCLOPHOSPHAMIDE [Suspect]
     Indication: NEOPLASM MALIGNANT
     Dosage: AS DIRECTED
     Route: 042
     Dates: start: 201307, end: 201309

REACTIONS (1)
  - Unevaluable event [None]
